FAERS Safety Report 10697155 (Version 1)
Quarter: 2015Q1

REPORT INFORMATION
  Report Type: Spontaneous
  Country: US (occurrence: None)
  Receive Date: 20150106
  Receipt Date: 20150106
  Transmission Date: 20150721
  Serious: Yes (Other)
  Sender: FDA-Public Use
  Company Number: 2014-US-016985

PATIENT
  Sex: Female
  Weight: 61.7 kg

DRUGS (1)
  1. XYREM [Suspect]
     Active Substance: SODIUM OXYBATE
     Indication: FIBROMYALGIA
     Route: 048
     Dates: start: 200405, end: 2004

REACTIONS (4)
  - Insomnia [None]
  - Somnolence [None]
  - Off label use [None]
  - Sleep apnoea syndrome [None]
